FAERS Safety Report 4700334-7 (Version None)
Quarter: 2005Q2

REPORT INFORMATION
  Report Type: 
  Country: None (occurrence: None)
  Receive Date: 20050627
  Receipt Date: 20050314
  Transmission Date: 20051028
  Serious: Yes (Hospitalization)
  Sender: FDA-Public Use
  Company Number: US-MERCK-0503USA02941

PATIENT
  Age: 49 Year
  Sex: Female
  Weight: 114 kg

DRUGS (8)
  1. VIOXX [Suspect]
     Indication: ARTHRITIS
     Route: 048
     Dates: start: 20000201, end: 20020401
  2. VIOXX [Suspect]
     Route: 048
     Dates: start: 20020101, end: 20040701
  3. MONOPRIL [Concomitant]
     Route: 048
     Dates: start: 20010101
  4. AVANDIA [Concomitant]
     Route: 048
  5. AMARYL [Concomitant]
     Route: 065
  6. NORVASC [Concomitant]
     Route: 048
     Dates: start: 20030101
  7. MAXZIDE [Concomitant]
     Route: 065
  8. LIPITOR [Concomitant]
     Route: 048
     Dates: start: 20020101

REACTIONS (8)
  - ANAEMIA [None]
  - ANXIETY [None]
  - BLOOD POTASSIUM INCREASED [None]
  - DIABETIC RETINOPATHY [None]
  - MACULAR OEDEMA [None]
  - RENAL IMPAIRMENT [None]
  - TRANSIENT ISCHAEMIC ATTACK [None]
  - WEIGHT INCREASED [None]
